FAERS Safety Report 4436982-1 (Version None)
Quarter: 2004Q3

REPORT INFORMATION
  Report Type: 
  Country: None (occurrence: None)
  Receive Date: 20040830
  Receipt Date: 20040319
  Transmission Date: 20050211
  Serious: No
  Sender: FDA-Public Use
  Company Number: US-GLAXOSMITHKLINE-A0503709A

PATIENT
  Sex: Male

DRUGS (5)
  1. BECONASE [Suspect]
     Dosage: 1SPR PER DAY
     Route: 045
  2. PRAVACHOL [Concomitant]
  3. PROAMATINE [Concomitant]
  4. REQUIP [Concomitant]
  5. VITAMIN E [Concomitant]

REACTIONS (1)
  - DIZZINESS [None]
